FAERS Safety Report 7517325-3 (Version None)
Quarter: 2011Q2

REPORT INFORMATION
  Report Type: 
  Country: None (occurrence: None)
  Receive Date: 20110601
  Receipt Date: 20110524
  Transmission Date: 20111010
  Serious: Yes (Hospitalization, Other)
  Sender: FDA-Public Use
  Company Number: US-US-EMD SERONO, INC.-7015874

PATIENT
  Sex: Female

DRUGS (7)
  1. REBIF [Suspect]
  2. IBUPROFEN [Concomitant]
     Indication: PREMEDICATION
  3. REBIF [Suspect]
     Indication: MULTIPLE SCLEROSIS
     Route: 058
     Dates: start: 20100527, end: 20101201
  4. ACETAMINOPHEN [Concomitant]
     Indication: PREMEDICATION
  5. ACETAMINOPHEN [Concomitant]
     Indication: PREMEDICATION
  6. COUMADIN [Concomitant]
     Indication: THROMBOSIS
  7. LOVENOX [Concomitant]
     Indication: POLYCYTHAEMIA VERA

REACTIONS (11)
  - INJECTION SITE ERYTHEMA [None]
  - PNEUMONIA [None]
  - NAUSEA [None]
  - WHITE BLOOD CELL COUNT DECREASED [None]
  - MULTIPLE SCLEROSIS RELAPSE [None]
  - PYREXIA [None]
  - CEREBROVASCULAR ACCIDENT [None]
  - CONVULSION [None]
  - HEPATIC ENZYME INCREASED [None]
  - PAIN [None]
  - INJECTION SITE PAIN [None]
